FAERS Safety Report 18637527 (Version 2)
Quarter: 2021Q1

REPORT INFORMATION
  Report Type: Spontaneous
  Country: LT (occurrence: LT)
  Receive Date: 20201218
  Receipt Date: 20210128
  Transmission Date: 20210419
  Serious: Yes (Life-Threatening, Hospitalization)
  Sender: FDA-Public Use
  Company Number: LT-MYLANLABS-2020M1102757

PATIENT
  Age: 45 Year
  Sex: Male
  Weight: 100 kg

DRUGS (6)
  1. BROMAZEPAM [Suspect]
     Active Substance: BROMAZEPAM
     Indication: PRODUCT USED FOR UNKNOWN INDICATION
     Dosage: 10 TABLETS PER DAY
     Route: 048
     Dates: start: 20201113, end: 20201113
  2. BROMAZEPAM [Suspect]
     Active Substance: BROMAZEPAM
     Dosage: 10 DOSAGE FORM, QD
     Route: 048
     Dates: start: 20201113, end: 20201113
  3. AMITRIPTYLINE [Suspect]
     Active Substance: AMITRIPTYLINE
     Indication: PRODUCT USED FOR UNKNOWN INDICATION
     Dosage: 10 TABLETS PER DAY
     Route: 048
     Dates: start: 20201113, end: 20201113
  4. AMITRIPTYLINE [Suspect]
     Active Substance: AMITRIPTYLINE
     Dosage: 10 DOSAGE FORM, QD
     Route: 065
     Dates: start: 20201113, end: 20201113
  5. PARACETAMOL [Suspect]
     Active Substance: ACETAMINOPHEN
     Dosage: 500 MILLIGRAM
     Route: 065
     Dates: start: 20201113, end: 20201113
  6. PARACETAMOL [Suspect]
     Active Substance: ACETAMINOPHEN
     Indication: PRODUCT USED FOR UNKNOWN INDICATION
     Dosage: UNKNOWN
     Route: 048
     Dates: start: 20201113, end: 20201113

REACTIONS (4)
  - Off label use [Unknown]
  - Intentional overdose [Unknown]
  - Intentional product use issue [Unknown]
  - Suicidal ideation [Recovering/Resolving]

NARRATIVE: CASE EVENT DATE: 20201113
